FAERS Safety Report 8010457-5 (Version None)
Quarter: 2011Q4

REPORT INFORMATION
  Report Type: 
  Country: None (occurrence: None)
  Receive Date: 20111223
  Receipt Date: 20111223
  Transmission Date: 20120403
  Serious: Yes (Life-Threatening, Hospitalization, Disabling, Other)
  Sender: FDA-Public Use
  Company Number: None

PATIENT
  Age: 32 Year
  Sex: Male
  Weight: 124.7392 kg

DRUGS (4)
  1. PSEUDOEPHEDRINE HCL [Concomitant]
  2. SEROQUEL [Concomitant]
  3. ZYPREXA [Suspect]
     Indication: AFFECTIVE DISORDER
     Dosage: 5 MG A DAY 047
     Dates: start: 19981209, end: 20011105
  4. PAXIL [Concomitant]

REACTIONS (9)
  - HAEMORRHAGE [None]
  - BLOOD GLUCOSE INCREASED [None]
  - VISUAL IMPAIRMENT [None]
  - SPEECH DISORDER [None]
  - PERSONALITY CHANGE [None]
  - DISSOCIATION [None]
  - WEIGHT INCREASED [None]
  - DYSGRAPHIA [None]
  - DIABETES MELLITUS [None]
